FAERS Safety Report 9356236 (Version 2)
Quarter: 2013Q3

REPORT INFORMATION
  Report Type: Report from Study
  Country: DK (occurrence: DK)
  Receive Date: 20130619
  Receipt Date: 20130723
  Transmission Date: 20140515
  Serious: Yes (Hospitalization)
  Sender: FDA-Public Use
  Company Number: DK-AMGEN-DNKCT2013043359

PATIENT
  Age: 64 Year
  Sex: Male

DRUGS (3)
  1. PANITUMUMAB [Suspect]
     Indication: NON-SMALL CELL LUNG CANCER
     Dosage: 9 MG/KG, Q3WK
     Route: 042
     Dates: start: 20121112
  2. CARBOPLATIN [Concomitant]
     Dosage: 600 MG, Q3WK
     Dates: start: 20121112
  3. VINORELBINE [Concomitant]
     Dosage: UNK UNK, Q3WK
     Route: 048
     Dates: start: 20121112

REACTIONS (1)
  - Hypomagnesaemia [Recovered/Resolved]
